FAERS Safety Report 8571431 (Version 2)
Quarter: 2013Q3

REPORT INFORMATION
  Report Type: Report from Study
  Country: IN (occurrence: IN)
  Receive Date: 20120521
  Receipt Date: 20130930
  Transmission Date: 20140515
  Serious: Yes (Death)
  Sender: FDA-Public Use
  Company Number: IN-ROCHE-1070286

PATIENT
  Sex: Male
  Weight: 72 kg

DRUGS (13)
  1. METHOXY POLYETHYLENE GLYCOL-EPOETIN BETA [Suspect]
     Indication: ANAEMIA
     Route: 065
     Dates: start: 20111115
  2. METHOXY POLYETHYLENE GLYCOL-EPOETIN BETA [Suspect]
     Route: 065
     Dates: start: 20111217
  3. METHOXY POLYETHYLENE GLYCOL-EPOETIN BETA [Suspect]
     Route: 065
     Dates: start: 20120110
  4. METHOXY POLYETHYLENE GLYCOL-EPOETIN BETA [Suspect]
     Route: 065
     Dates: start: 20120207
  5. METHOXY POLYETHYLENE GLYCOL-EPOETIN BETA [Suspect]
     Route: 065
     Dates: start: 20120307
  6. METHOXY POLYETHYLENE GLYCOL-EPOETIN BETA [Suspect]
     Route: 065
     Dates: start: 20111130
  7. METHOXY POLYETHYLENE GLYCOL-EPOETIN BETA [Suspect]
     Route: 065
     Dates: start: 20110404
  8. ACTRAPID [Concomitant]
     Indication: DIABETES MELLITUS
     Route: 058
     Dates: start: 2010
  9. CILNIDIPINE [Concomitant]
     Indication: HYPERTENSION
     Route: 048
     Dates: start: 20111111
  10. METOLAZONE [Concomitant]
     Indication: HYPERTENSION
     Route: 048
     Dates: start: 20111111
  11. ASPIRIN [Concomitant]
     Indication: MYOCARDIAL ISCHAEMIA
     Route: 065
     Dates: start: 2008
  12. ATORVASTATIN [Concomitant]
     Indication: MYOCARDIAL ISCHAEMIA
     Route: 065
     Dates: start: 2008
  13. RABLET [Concomitant]
     Route: 048
     Dates: start: 20111111

REACTIONS (1)
  - Death [Fatal]
